FAERS Safety Report 22322497 (Version 1)
Quarter: 2023Q2

REPORT INFORMATION
  Report Type: Spontaneous
  Country: US (occurrence: US)
  Receive Date: 20230516
  Receipt Date: 20230516
  Transmission Date: 20230721
  Serious: Yes (Death, Other)
  Sender: FDA-Public Use
  Company Number: US-AMGEN-USASP2023082271

PATIENT
  Age: 40 Year
  Sex: Male

DRUGS (11)
  1. BLINCYTO [Suspect]
     Active Substance: BLINATUMOMAB
     Indication: B-cell type acute leukaemia
     Dosage: UNK
     Route: 065
  2. CYCLOPHOSPHAMIDE [Concomitant]
     Active Substance: CYCLOPHOSPHAMIDE
  3. VINCRISTINE [Concomitant]
     Active Substance: VINCRISTINE
  4. DOXORUBICIN [Concomitant]
     Active Substance: DOXORUBICIN
  5. METHOTREXATE [Concomitant]
     Active Substance: METHOTREXATE
     Route: 029
  6. CYTARABINE [Concomitant]
     Active Substance: CYTARABINE
     Route: 029
  7. DEXAMETHASONE [Concomitant]
     Active Substance: DEXAMETHASONE
  8. MERCAPTOPURINE [Concomitant]
     Active Substance: MERCAPTOPURINE
  9. PREDNISONE [Concomitant]
     Active Substance: PREDNISONE
  10. VELCADE [Concomitant]
     Active Substance: BORTEZOMIB
  11. NIVOLUMAB [Concomitant]
     Active Substance: NIVOLUMAB

REACTIONS (1)
  - Death [Fatal]
